FAERS Safety Report 12527321 (Version 1)
Quarter: 2016Q3

REPORT INFORMATION
  Report Type: Spontaneous
  Country: US (occurrence: US)
  Receive Date: 20160705
  Receipt Date: 20160705
  Transmission Date: 20161109
  Serious: Yes (Other)
  Sender: FDA-Public Use
  Company Number: US-ELI_LILLY_AND_COMPANY-US201606010408

PATIENT

DRUGS (1)
  1. HUMALOG [Suspect]
     Active Substance: INSULIN LISPRO
     Indication: TYPE 1 DIABETES MELLITUS
     Dosage: 35-50 U, UNKNOWN
     Route: 065
     Dates: start: 201501

REACTIONS (4)
  - Blood glucose increased [Recovered/Resolved]
  - Blood ketone body increased [Unknown]
  - Wrong technique in product usage process [Unknown]
  - Drug ineffective [Unknown]
